FAERS Safety Report 10153528 (Version 2)
Quarter: 2014Q2

REPORT INFORMATION
  Report Type: Spontaneous
  Country: BR (occurrence: BR)
  Receive Date: 20140505
  Receipt Date: 20140515
  Transmission Date: 20141212
  Serious: Yes (Other)
  Sender: FDA-Public Use
  Company Number: BR-PFIZER INC-2014120612

PATIENT
  Age: 82 Year
  Sex: Female

DRUGS (5)
  1. DETRUSITOL LA [Suspect]
     Dosage: 4 MG, UNK
     Route: 048
     Dates: start: 20140424
  2. APROVEL [Concomitant]
     Indication: HYPERTENSION
     Dosage: UNK
  3. LABYRIN [Concomitant]
     Indication: LABYRINTHITIS
     Dosage: UNK
  4. PAROXETINE [Concomitant]
     Indication: DEPRESSION
     Dosage: UNK
  5. OMEPRAZOLE [Concomitant]
     Dosage: UNK

REACTIONS (2)
  - Delirium [Unknown]
  - Urinary tract infection [Unknown]
